FAERS Safety Report 5487243-3 (Version None)
Quarter: 2007Q4

REPORT INFORMATION
  Report Type: 
  Country: None (occurrence: None)
  Receive Date: 20071016
  Receipt Date: 20071005
  Transmission Date: 20080405
  Serious: Yes (Hospitalization, Disabling)
  Sender: FDA-Public Use
  Company Number: FR-GENENTECH-246652

PATIENT
  Sex: Female

DRUGS (3)
  1. LUCENTIS [Suspect]
     Indication: MACULAR DEGENERATION
     Dosage: 0.05 ML, UNK
     Route: 031
     Dates: start: 20070214, end: 20070601
  2. AVASTIN [Suspect]
     Indication: MACULAR DEGENERATION
  3. PHOTODYNAMIC THERAPY [Concomitant]
     Indication: MACULAR DEGENERATION

REACTIONS (4)
  - CONCOMITANT DISEASE PROGRESSION [None]
  - DISEASE PROGRESSION [None]
  - DRUG INEFFECTIVE [None]
  - HAEMATOMA [None]
